FAERS Safety Report 9386832 (Version 1)
Quarter: 2013Q3

REPORT INFORMATION
  Report Type: Spontaneous
  Country: US (occurrence: US)
  Receive Date: 20130708
  Receipt Date: 20130708
  Transmission Date: 20140515
  Serious: Yes (Other)
  Sender: FDA-Public Use
  Company Number: US-PFIZER INC-2013197996

PATIENT
  Age: 53 Year
  Sex: Female
  Weight: 81.63 kg

DRUGS (7)
  1. LYRICA [Suspect]
     Indication: FIBROMYALGIA
     Dosage: 300 MG, 1X/DAY
     Dates: start: 201212
  2. LYRICA [Suspect]
     Dosage: 150 MG, 1X/DAY
  3. LYRICA [Suspect]
     Dosage: 150 MG, ALTERNATE DAY
     Dates: end: 20130614
  4. LYRICA [Suspect]
     Dosage: UNK
  5. LYRICA [Suspect]
     Dosage: 50 MG, 2X/DAY
     Dates: start: 20130625
  6. RELPAX [Concomitant]
     Indication: MIGRAINE
     Dosage: 40 MG, AS NEEDED
  7. AMBIEN [Concomitant]
     Indication: SLEEP DISORDER
     Dosage: 12.5 MG, AS NEEDED

REACTIONS (2)
  - Headache [Recovered/Resolved]
  - Drug ineffective [Unknown]
